FAERS Safety Report 4534809-0 (Version None)
Quarter: 2004Q4

REPORT INFORMATION
  Report Type: 
  Country: None (occurrence: None)
  Receive Date: 20041222
  Receipt Date: 20040322
  Transmission Date: 20050328
  Serious: No
  Sender: FDA-Public Use
  Company Number: US-BRISTOL-MYERS SQUIBB COMPANY-12539433

PATIENT
  Age: 89 Year
  Sex: Female
  Weight: 56 kg

DRUGS (9)
  1. PRAVACHOL [Suspect]
     Indication: LABORATORY TEST ABNORMAL
     Dosage: DURATION OF THERAPY:  ^YEARS^
     Route: 048
  2. NORVASC [Concomitant]
  3. VASOTEC [Concomitant]
  4. ONE-A-DAY [Concomitant]
  5. FISH OIL [Concomitant]
  6. COENZYME Q10 [Concomitant]
  7. CALCIUM [Concomitant]
  8. MAGNESIUM [Concomitant]
  9. ASPIRIN [Concomitant]
     Dosage: SEVERAL TIMES A DAY

REACTIONS (2)
  - DIARRHOEA [None]
  - VOMITING [None]
